FAERS Safety Report 12866246 (Version 1)
Quarter: 2016Q4

REPORT INFORMATION
  Report Type: Report from Study
  Country: US (occurrence: US)
  Receive Date: 20161020
  Receipt Date: 20161020
  Transmission Date: 20170207
  Serious: No
  Sender: FDA-Public Use
  Company Number: US-AMGEN-USASL2016140369

PATIENT
  Age: 44 Year
  Sex: Female

DRUGS (2)
  1. ENBREL [Suspect]
     Active Substance: ETANERCEPT
     Dosage: 50 MG, 2 TIMES/WK
     Route: 065
     Dates: end: 2016
  2. ENBREL [Suspect]
     Active Substance: ETANERCEPT
     Indication: PSORIATIC ARTHROPATHY
     Dosage: 50 MG, 2 TIMES/WK
     Route: 065
     Dates: start: 2003

REACTIONS (7)
  - Dermatitis [Unknown]
  - Infertility [Unknown]
  - Fungal infection [Recovered/Resolved]
  - Pharyngitis [Recovered/Resolved]
  - Arthropathy [Not Recovered/Not Resolved]
  - Bronchitis [Unknown]
  - Stress [Unknown]

NARRATIVE: CASE EVENT DATE: 2016
